FAERS Safety Report 15111708 (Version 1)
Quarter: 2018Q3

REPORT INFORMATION
  Report Type: Spontaneous
  Country: US (occurrence: US)
  Receive Date: 20180705
  Receipt Date: 20180705
  Transmission Date: 20181010
  Serious: No
  Sender: FDA-Public Use
  Company Number: US-ALKERMES INC.-ALK-2018-003187

PATIENT
  Sex: Female

DRUGS (1)
  1. ARISTADA [Suspect]
     Active Substance: ARIPIPRAZOLE LAUROXIL
     Indication: PRODUCT USED FOR UNKNOWN INDICATION
     Dosage: UNK, Q2MO
     Route: 058

REACTIONS (8)
  - Weight increased [Not Recovered/Not Resolved]
  - Nausea [Not Recovered/Not Resolved]
  - Fear of injection [Recovered/Resolved]
  - Injection site erythema [Recovered/Resolved]
  - Incorrect route of drug administration [Not Recovered/Not Resolved]
  - Injection site mass [Recovered/Resolved]
  - Dyspepsia [Not Recovered/Not Resolved]
  - Injection site swelling [Recovered/Resolved]
